FAERS Safety Report 18891679 (Version 2)
Quarter: 2021Q1

REPORT INFORMATION
  Report Type: Report from Study
  Country: None (occurrence: CA)
  Receive Date: 20210215
  Receipt Date: 20210216
  Transmission Date: 20210420
  Serious: No
  Sender: FDA-Public Use
  Company Number: CA-ABBVIE-21K-028-3771814-00

PATIENT
  Age: 46 Year
  Sex: Male

DRUGS (1)
  1. RINVOQ [Suspect]
     Active Substance: UPADACITINIB
     Indication: RHEUMATOID ARTHRITIS
     Route: 048
     Dates: start: 20201128

REACTIONS (1)
  - Abdominal pain lower [Unknown]

NARRATIVE: CASE EVENT DATE: 20210118
